FAERS Safety Report 8933173 (Version 2)
Quarter: 2012Q4

REPORT INFORMATION
  Report Type: 
  Country: US (occurrence: US)
  Receive Date: 20121129
  Receipt Date: 20121224
  Transmission Date: 20130627
  Serious: No
  Sender: FDA-Public Use
  Company Number: US-BIOGENIDEC-2012BI055754

PATIENT
  Age: 40 Year
  Sex: Female

DRUGS (2)
  1. TYSABRI [Suspect]
     Indication: MULTIPLE SCLEROSIS
     Route: 042
     Dates: start: 20091203, end: 20111206
  2. TYSABRI [Suspect]
     Indication: MULTIPLE SCLEROSIS
     Route: 042
     Dates: start: 20121008

REACTIONS (9)
  - General symptom [Unknown]
  - Ear pain [Recovered/Resolved]
  - Ear congestion [Recovered/Resolved]
  - Eye pain [Recovered/Resolved]
  - Thinking abnormal [Not Recovered/Not Resolved]
  - Central nervous system lesion [Not Recovered/Not Resolved]
  - Rhinalgia [Recovered/Resolved]
  - Vaginal infection [Not Recovered/Not Resolved]
  - Fatigue [Recovered/Resolved]
